FAERS Safety Report 5280381-X (Version None)
Quarter: 2007Q1

REPORT INFORMATION
  Report Type: 
  Country: None (occurrence: None)
  Receive Date: 20061229
  Receipt Date: 20060811
  Transmission Date: 20070707
  Serious: Yes (Other)
  Sender: FDA-Public Use
  Company Number: 2006UW16099

PATIENT
  Age: 45 Year
  Sex: Female
  Weight: 89.811 kg

DRUGS (1)
  1. CRESTOR [Suspect]
     Indication: BLOOD CHOLESTEROL INCREASED

REACTIONS (3)
  - DYSURIA [None]
  - RENAL DISORDER [None]
  - URINE OUTPUT DECREASED [None]
